FAERS Safety Report 7511212-2 (Version None)
Quarter: 2011Q2

REPORT INFORMATION
  Report Type: 
  Country: None (occurrence: None)
  Receive Date: 20110531
  Receipt Date: 20110516
  Transmission Date: 20111010
  Serious: Yes (Other)
  Sender: FDA-Public Use
  Company Number: PHHY2011IE43639

PATIENT
  Sex: Female

DRUGS (13)
  1. AMLODIPINE [Concomitant]
     Dosage: 5 MG, QD
  2. RAMIPRIL [Concomitant]
     Dosage: 10 MG, QD
  3. TOVIAZ [Concomitant]
  4. ATORVASTATIN [Concomitant]
     Dosage: 20 MG
     Dates: start: 20110406
  5. BUMETANIDE [Concomitant]
     Dosage: 1 MG, QD
  6. LERCANIDIPINE [Concomitant]
     Dosage: 10 MG, QD
  7. NEORAL [Suspect]
     Dosage: 125 MG, BID
  8. NEORAL [Suspect]
     Dosage: 125 MG MANE AND 100 NOCTE
  9. CALCICHEW-D3 [Concomitant]
     Dosage: 2 TABLETS OD
  10. ASPIRIN [Concomitant]
     Dosage: 75 MG, QD
  11. FOSAMAX [Concomitant]
     Dosage: 70 MG, QD
  12. LANSOPRAZOLE [Concomitant]
     Dosage: 30 MG, QD
  13. PREDNISOLONE [Concomitant]
     Dosage: 35 MG, QD

REACTIONS (10)
  - NEPHRITIS [None]
  - FATIGUE [None]
  - JOINT SWELLING [None]
  - PROTEINURIA [None]
  - NEUROTOXICITY [None]
  - MOUTH ULCERATION [None]
  - MUSCLE SPASMS [None]
  - TREMOR [None]
  - HYPERTENSION [None]
  - LETHARGY [None]
